FAERS Safety Report 25201717 (Version 1)
Quarter: 2025Q2

REPORT INFORMATION
  Report Type: Spontaneous
  Country: FR (occurrence: FR)
  Receive Date: 20250416
  Receipt Date: 20250416
  Transmission Date: 20250717
  Serious: Yes (Other)
  Sender: AMGEN
  Company Number: FR-AMGEN-FRASP2025071735

PATIENT

DRUGS (1)
  1. BLINATUMOMAB [Suspect]
     Active Substance: BLINATUMOMAB
     Indication: B-cell type acute leukaemia
     Route: 065

REACTIONS (5)
  - B-cell type acute leukaemia [Unknown]
  - Infection [Unknown]
  - Cytokine release syndrome [Unknown]
  - Central nervous system leukaemia [Unknown]
  - Off label use [Unknown]
